FAERS Safety Report 5169512-X (Version None)
Quarter: 2006Q4

REPORT INFORMATION
  Report Type: 
  Country: None (occurrence: None)
  Receive Date: 20061211
  Receipt Date: 20061201
  Transmission Date: 20070319
  Serious: Yes (Death)
  Sender: FDA-Public Use
  Company Number: US-JNJFOC-20061200448

PATIENT
  Age: 69 Year
  Sex: Female

DRUGS (4)
  1. REOPRO [Suspect]
     Dosage: 12 HOUR INFUSION 0.125 MCG/KG/MIN
     Route: 065
  2. REOPRO [Suspect]
     Indication: CEREBRAL ARTERY OCCLUSION
     Route: 065
  3. ACTIVASE [Suspect]
     Indication: CEREBRAL ARTERY OCCLUSION
  4. HEPARIN [Concomitant]
     Indication: CEREBRAL ARTERY OCCLUSION

REACTIONS (1)
  - HAEMORRHAGE INTRACRANIAL [None]
